FAERS Safety Report 23482030 (Version 1)
Quarter: 2024Q1

REPORT INFORMATION
  Report Type: Spontaneous
  Country: GR (occurrence: GR)
  Receive Date: 20240205
  Receipt Date: 20240205
  Transmission Date: 20240410
  Serious: Yes (Other)
  Sender: FDA-Public Use
  Company Number: GR-SUN PHARMACEUTICAL INDUSTRIES LTD-2024RR-430250

PATIENT
  Age: 67 Year
  Sex: Female
  Weight: 64 kg

DRUGS (6)
  1. EZETIMIBE [Suspect]
     Active Substance: EZETIMIBE
     Indication: Primary hypercholesterolaemia
     Dosage: 10 MILLIGRAM
     Route: 048
     Dates: end: 20230901
  2. SIMVASTATIN [Suspect]
     Active Substance: SIMVASTATIN
     Indication: Product used for unknown indication
     Dosage: 10 MILLIGRAM, UNK
     Route: 048
     Dates: end: 20171001
  3. PITAVASTATIN [Suspect]
     Active Substance: PITAVASTATIN
     Indication: Primary hypercholesterolaemia
     Dosage: 1 MILLIGRAM, UNK
     Route: 048
     Dates: end: 20150201
  4. PRAVASTATIN [Suspect]
     Active Substance: PRAVASTATIN
     Indication: Primary hypercholesterolaemia
     Dosage: 20 MILLIGRAM, UNK
     Route: 048
     Dates: start: 20141001, end: 20141101
  5. ATORVASTATIN [Suspect]
     Active Substance: ATORVASTATIN
     Indication: Primary hypercholesterolaemia
     Dosage: 10 MILLIGRAM, UNK
     Route: 048
     Dates: end: 20190401
  6. ROSUVASTATIN [Suspect]
     Active Substance: ROSUVASTATIN
     Indication: Primary hypercholesterolaemia
     Dosage: 10 MILLIGRAM, UNK
     Route: 048
     Dates: end: 20191101

REACTIONS (12)
  - Myalgia [Recovered/Resolved]
  - Muscle spasms [Recovered/Resolved]
  - Muscle spasms [Recovered/Resolved]
  - Muscle spasms [Recovered/Resolved]
  - Myalgia [Recovered/Resolved]
  - Muscle spasms [Recovered/Resolved]
  - Muscle spasms [Recovered/Resolved]
  - Myalgia [Recovered/Resolved]
  - Myalgia [Recovered/Resolved]
  - Myalgia [Recovered/Resolved]
  - Muscle spasms [Recovered/Resolved]
  - Myalgia [Recovered/Resolved]

NARRATIVE: CASE EVENT DATE: 20141101
